FAERS Safety Report 7740851-9 (Version None)
Quarter: 2011Q3

REPORT INFORMATION
  Report Type: 
  Country: None (occurrence: None)
  Receive Date: 20110909
  Receipt Date: 20110902
  Transmission Date: 20111222
  Serious: No
  Sender: FDA-Public Use
  Company Number: GB-NAPPMUNDI-GBR-2011-0008679

PATIENT
  Sex: Female

DRUGS (11)
  1. MS CONTIN [Suspect]
     Dosage: 130 MG, BID
     Route: 048
     Dates: start: 20110816
  2. LOPERAMIDE HCL [Concomitant]
     Indication: ILEOSTOMY
     Dosage: 2 MG, UNK
     Route: 048
     Dates: start: 20110201
  3. ASPIRIN [Concomitant]
     Dosage: 75 MG, UNK
     Route: 048
  4. LORAZEPAM [Concomitant]
     Indication: INSOMNIA
     Dosage: 2 MG, UNK
     Route: 048
  5. FENTANYL-100 [Suspect]
     Indication: CANCER PAIN
  6. LORAZEPAM [Concomitant]
     Indication: ANXIETY
  7. LANSOPRAZOLE [Concomitant]
     Indication: ULCER
     Dosage: 30 UNK, BID
     Route: 048
  8. ORAMORPH SR [Concomitant]
     Indication: PAIN
     Dosage: 20 MG, PRN
     Route: 048
     Dates: start: 20110701
  9. FERROUS FUMARATE [Concomitant]
     Indication: ANAEMIA
     Route: 048
  10. ACETAMINOPHEN [Concomitant]
     Indication: PAIN
     Dosage: 1 G, DAILY
     Route: 048
     Dates: start: 20110201
  11. MS CONTIN [Suspect]
     Indication: NEOPLASM MALIGNANT
     Dosage: 80 MG, BID
     Route: 048
     Dates: start: 20110713, end: 20110815

REACTIONS (1)
  - MEDICATION RESIDUE [None]
